FAERS Safety Report 7367241-5 (Version None)
Quarter: 2011Q1

REPORT INFORMATION
  Report Type: 
  Country: None (occurrence: None)
  Receive Date: 20110322
  Receipt Date: 20110223
  Transmission Date: 20110831
  Serious: No
  Sender: FDA-Public Use
  Company Number: US-B.I. PHARMACEUTICALS,INC./RIDGEFIELD-2011-BP-06556BP

PATIENT
  Sex: Female

DRUGS (2)
  1. METOPROLOL [Concomitant]
     Indication: HYPERTENSION
  2. PRADAXA [Suspect]
     Indication: ATRIAL FIBRILLATION
     Route: 048
     Dates: start: 20110201

REACTIONS (3)
  - PALPITATIONS [None]
  - INSOMNIA [None]
  - BLOOD PRESSURE INCREASED [None]
